FAERS Safety Report 19115373 (Version 4)
Quarter: 2021Q3

REPORT INFORMATION
  Report Type: Spontaneous
  Country: DE (occurrence: DE)
  Receive Date: 20210409
  Receipt Date: 20210824
  Transmission Date: 20211014
  Serious: Yes (Hospitalization)
  Sender: FDA-Public Use
  Company Number: NVSC2021DE074714

PATIENT
  Age: 14 Year
  Sex: Female
  Weight: 58 kg

DRUGS (10)
  1. ROCALTROL [Concomitant]
     Active Substance: CALCITRIOL
     Indication: HYPOPARATHYROIDISM
     Dosage: UNK
     Route: 065
  2. HYDROCORTISONE. [Suspect]
     Active Substance: HYDROCORTISONE
     Indication: ADRENAL INSUFFICIENCY
     Dosage: 10 MG (2?1?0)
     Route: 065
  3. PARATHYROID HORMONE [Suspect]
     Active Substance: PARATHYROID HORMONE
     Dosage: 25 UG, QD (25 MICROGRAM, 1X/DAY, IN THE MORNING 4 CLICKS, IN EVENING FULL DOSE)
     Route: 058
     Dates: start: 20200817
  4. PARATHYROID HORMONE [Suspect]
     Active Substance: PARATHYROID HORMONE
     Dosage: UNK
     Route: 065
     Dates: start: 202012
  5. ASTONIN H [Concomitant]
     Active Substance: FLUDROCORTISONE
     Indication: ADRENAL INSUFFICIENCY
     Dosage: UNK
     Route: 065
  6. PARATHYROID HORMONE [Suspect]
     Active Substance: PARATHYROID HORMONE
     Dosage: 25 UG, QD (25 MICROGRAM, 1X/DAY, IN THE MORNING 4 CLICKS, IN EVENING FULL DOSE)
     Route: 058
     Dates: start: 20200817
  7. TRUSOPT [Concomitant]
     Active Substance: DORZOLAMIDE HYDROCHLORIDE
     Indication: RETINAL DYSTROPHY
     Dosage: UNK (DROPS)
     Route: 065
  8. PARATHYROID HORMONE [Suspect]
     Active Substance: PARATHYROID HORMONE
     Indication: HYPOPARATHYROIDISM
     Dosage: 25 UG, QD (25 MICROGRAM, 1X/DAY QD)
     Route: 058
     Dates: start: 20200817
  9. CALCIUM [Concomitant]
     Active Substance: CALCIUM
     Indication: HYPOPARATHYROIDISM
     Dosage: 500 MG, QD (2 TO 3 TIMES A DAY)
     Route: 048
  10. ASTONIN H [Concomitant]
     Active Substance: FLUDROCORTISONE
     Indication: ADRENOCORTICAL INSUFFICIENCY ACUTE

REACTIONS (16)
  - Restlessness [Not Recovered/Not Resolved]
  - Nausea [Not Recovered/Not Resolved]
  - Discomfort [Recovered/Resolved]
  - Candida infection [Recovering/Resolving]
  - Hypocalcaemia [Recovering/Resolving]
  - Blood calcium increased [Not Recovered/Not Resolved]
  - Fatigue [Recovered/Resolved]
  - Abdominal pain upper [Not Recovered/Not Resolved]
  - Product use issue [Not Recovered/Not Resolved]
  - Chvostek^s sign [Recovered/Resolved]
  - Tachycardia [Recovered/Resolved]
  - Rash [Not Recovered/Not Resolved]
  - Off label use [Not Recovered/Not Resolved]
  - Device issue [Recovered/Resolved]
  - Diarrhoea [Recovering/Resolving]
  - Keratitis [Recovering/Resolving]

NARRATIVE: CASE EVENT DATE: 20200817
